FAERS Safety Report 14671216 (Version 4)
Quarter: 2020Q2

REPORT INFORMATION
  Report Type: Spontaneous
  Country: JP (occurrence: JP)
  Receive Date: 20180322
  Receipt Date: 20200616
  Transmission Date: 20200713
  Serious: Yes (Hospitalization, Other)
  Sender: FDA-Public Use
  Company Number: JP-SA-2018SA084658

PATIENT

DRUGS (43)
  1. ELPLAT [Suspect]
     Active Substance: OXALIPLATIN
     Dosage: 140 MG, QCY
     Route: 041
     Dates: start: 20100721, end: 20100721
  2. ELPLAT [Suspect]
     Active Substance: OXALIPLATIN
     Dosage: 140 MG, QCY
     Route: 041
     Dates: start: 20101222, end: 20101222
  3. ELPLAT [Suspect]
     Active Substance: OXALIPLATIN
     Dosage: 140 MG, QCY
     Route: 041
     Dates: start: 20110413, end: 20110413
  4. ELPLAT [Suspect]
     Active Substance: OXALIPLATIN
     Dosage: 140 MG, QCY
     Route: 041
     Dates: start: 20110706, end: 20110706
  5. ELPLAT [Suspect]
     Active Substance: OXALIPLATIN
     Dosage: 140 MG, QCY
     Route: 041
     Dates: start: 20110914, end: 20110914
  6. DECADRON (DEXAMETHASONE SODIUM PHOSPHATE) [Concomitant]
     Active Substance: DEXAMETHASONE SODIUM PHOSPHATE
     Dosage: UNK
     Dates: start: 20100224, end: 20111012
  7. ELPLAT [Suspect]
     Active Substance: OXALIPLATIN
     Dosage: 140 MG, QCY
     Route: 041
     Dates: start: 20100407, end: 20100407
  8. ELPLAT [Suspect]
     Active Substance: OXALIPLATIN
     Dosage: 140 MG, QCY
     Route: 041
     Dates: start: 20100804, end: 20100804
  9. ELPLAT [Suspect]
     Active Substance: OXALIPLATIN
     Dosage: 140 MG, QCY
     Route: 041
     Dates: start: 20110316, end: 20110316
  10. ELPLAT [Suspect]
     Active Substance: OXALIPLATIN
     Dosage: 140 MG, QCY
     Route: 041
     Dates: start: 20110525, end: 20110525
  11. ELPLAT [Suspect]
     Active Substance: OXALIPLATIN
     Dosage: 140 MG, QCY
     Route: 041
     Dates: start: 20110803, end: 20110803
  12. ELPLAT [Suspect]
     Active Substance: OXALIPLATIN
     Dosage: 140 MG, QCY
     Route: 041
     Dates: start: 20100609, end: 20100609
  13. ELPLAT [Suspect]
     Active Substance: OXALIPLATIN
     Dosage: 140 MG, QCY
     Route: 041
     Dates: start: 20100818, end: 20100818
  14. ELPLAT [Suspect]
     Active Substance: OXALIPLATIN
     Dosage: 140 MG, QCY
     Route: 041
     Dates: start: 20110119, end: 20110119
  15. ELPLAT [Suspect]
     Active Substance: OXALIPLATIN
     Dosage: 140 MG, QCY
     Route: 041
     Dates: start: 20110216, end: 20110216
  16. ELPLAT [Suspect]
     Active Substance: OXALIPLATIN
     Dosage: 140 MG, QCY
     Route: 041
     Dates: start: 20100526, end: 20100526
  17. ELPLAT [Suspect]
     Active Substance: OXALIPLATIN
     Dosage: 140 MG, QCY
     Route: 041
     Dates: start: 20101006, end: 20101006
  18. ISOVORIN [Concomitant]
     Active Substance: LEUCOVORIN CALCIUM
     Dosage: UNK
     Dates: start: 20100224, end: 20111012
  19. 5-FU [Concomitant]
     Active Substance: FLUOROURACIL
     Dosage: UNK
     Dates: start: 20100818, end: 20111012
  20. AVASTIN [Concomitant]
     Active Substance: BEVACIZUMAB
     Dosage: UNK
     Dates: start: 20100526, end: 20111012
  21. ELPLAT [Suspect]
     Active Substance: OXALIPLATIN
     Indication: RECTAL CANCER
     Dosage: 140 MG, QCY
     Route: 041
     Dates: start: 20100224, end: 20100224
  22. ELPLAT [Suspect]
     Active Substance: OXALIPLATIN
     Dosage: 140 MG, QCY
     Route: 041
     Dates: start: 20100707, end: 20100707
  23. ELPLAT [Suspect]
     Active Substance: OXALIPLATIN
     Dosage: 140 MG, QCY
     Route: 041
     Dates: start: 20101027, end: 20101027
  24. ELPLAT [Suspect]
     Active Substance: OXALIPLATIN
     Dosage: 140 MG, QCY
     Route: 041
     Dates: start: 20101117, end: 20101117
  25. ELPLAT [Suspect]
     Active Substance: OXALIPLATIN
     Dosage: 140 MG, QCY
     Route: 041
     Dates: start: 20110427, end: 20110427
  26. ELPLAT [Suspect]
     Active Substance: OXALIPLATIN
     Dosage: 140 MG, QCY
     Route: 041
     Dates: start: 20110831, end: 20110831
  27. GRANISTERON [Concomitant]
     Active Substance: GRANISETRON
     Dosage: UNK
     Dates: start: 20100224, end: 20100512
  28. ELPLAT [Suspect]
     Active Substance: OXALIPLATIN
     Dosage: 140 MG, QCY
     Route: 041
     Dates: start: 20100908, end: 20100908
  29. ELPLAT [Suspect]
     Active Substance: OXALIPLATIN
     Dosage: 140 MG, QCY
     Route: 041
     Dates: start: 20100922, end: 20100922
  30. ELPLAT [Suspect]
     Active Substance: OXALIPLATIN
     Dosage: 140 MG, QCY
     Route: 041
     Dates: start: 20110105, end: 20110105
  31. ELPLAT [Suspect]
     Active Substance: OXALIPLATIN
     Dosage: 140 MG, QCY
     Route: 041
     Dates: start: 20110302, end: 20110302
  32. ELPLAT [Suspect]
     Active Substance: OXALIPLATIN
     Dosage: 140 MG, QCY
     Route: 041
     Dates: start: 20110928, end: 20110928
  33. ELPLAT [Suspect]
     Active Substance: OXALIPLATIN
     Dosage: 140 MG, QCY
     Route: 041
     Dates: start: 20111012, end: 20111012
  34. ELPLAT [Suspect]
     Active Substance: OXALIPLATIN
     Dosage: 140 MG, QCY
     Route: 041
     Dates: start: 20100310, end: 20100310
  35. ELPLAT [Suspect]
     Active Substance: OXALIPLATIN
     Dosage: 140 MG, QCY
     Route: 041
     Dates: start: 20100512, end: 20100512
  36. ELPLAT [Suspect]
     Active Substance: OXALIPLATIN
     Dosage: 140 MG, QCY
     Route: 041
     Dates: start: 20100623, end: 20100623
  37. ELPLAT [Suspect]
     Active Substance: OXALIPLATIN
     Dosage: 140 MG, QCY
     Route: 041
     Dates: start: 20101208, end: 20101208
  38. ELPLAT [Suspect]
     Active Substance: OXALIPLATIN
     Dosage: 140 MG, QCY
     Route: 041
     Dates: start: 20110202, end: 20110202
  39. ELPLAT [Suspect]
     Active Substance: OXALIPLATIN
     Dosage: 140 MG, QCY
     Route: 041
     Dates: start: 20110720, end: 20110720
  40. ELPLAT [Suspect]
     Active Substance: OXALIPLATIN
     Dosage: 140 MG, QCY
     Route: 041
     Dates: start: 20100324, end: 20100324
  41. ELPLAT [Suspect]
     Active Substance: OXALIPLATIN
     Dosage: 140 MG, QCY
     Route: 041
     Dates: start: 20100421, end: 20100421
  42. ELPLAT [Suspect]
     Active Substance: OXALIPLATIN
     Dosage: 140 MG, QCY
     Route: 041
     Dates: start: 20110511, end: 20110511
  43. KYTRIL [Concomitant]
     Active Substance: GRANISETRON HYDROCHLORIDE
     Dosage: UNK
     Dates: start: 20100526, end: 20111012

REACTIONS (7)
  - Splenomegaly [Unknown]
  - Bleeding varicose vein [Recovered/Resolved]
  - Varices oesophageal [Unknown]
  - Thrombocytopenia [Recovered/Resolved]
  - Stomal varices [Unknown]
  - Hepatic function abnormal [Not Recovered/Not Resolved]
  - Venoocclusive liver disease [Unknown]

NARRATIVE: CASE EVENT DATE: 20100510
